FAERS Safety Report 14284804 (Version 5)
Quarter: 2023Q2

REPORT INFORMATION
  Report Type: Spontaneous
  Country: GB (occurrence: GB)
  Receive Date: 20171214
  Receipt Date: 20230407
  Transmission Date: 20230722
  Serious: Yes (Death)
  Sender: FDA-Public Use
  Company Number: None

PATIENT
  Age: 79 Year
  Sex: Female
  Weight: 79 kg

DRUGS (17)
  1. LEVEMIR [Suspect]
     Active Substance: INSULIN DETEMIR
     Indication: Product used for unknown indication
     Dosage: 10 IU, PRN
     Route: 058
     Dates: start: 20170403
  2. EPREX [Suspect]
     Active Substance: ERYTHROPOIETIN
     Indication: Anaemia
     Dosage: 3000 IU, QW
     Route: 058
     Dates: start: 20170628
  3. ALFACALCIDOL [Suspect]
     Active Substance: ALFACALCIDOL
     Indication: Product used for unknown indication
     Dosage: 0.25 ?G, PRN
     Route: 048
     Dates: start: 20161213
  4. APIDRA [Suspect]
     Active Substance: INSULIN GLULISINE
     Indication: Product used for unknown indication
     Dosage: 36 IU, QD
     Route: 058
     Dates: start: 20170403
  5. ENOXAPARIN SODIUM [Suspect]
     Active Substance: ENOXAPARIN SODIUM
     Indication: Product used for unknown indication
     Dosage: 20 MG
     Route: 042
     Dates: start: 20170317
  6. ENGERIX-B [Suspect]
     Active Substance: HEPATITIS B VIRUS SUBTYPE ADW2 HBSAG SURFACE PROTEIN ANTIGEN
     Indication: Product used for unknown indication
     Dosage: 40 ?G, PRN(AS NECESSARY)
     Route: 030
     Dates: start: 20161003
  7. FOLIC ACID [Suspect]
     Active Substance: FOLIC ACID
     Indication: Product used for unknown indication
     Dosage: 5 MG, PRN(AS NECESSARY)
     Route: 048
     Dates: start: 20170324
  8. RAMIPRIL [Suspect]
     Active Substance: RAMIPRIL
     Indication: Product used for unknown indication
     Dosage: 2.5 MG, PRN
     Route: 048
     Dates: start: 20140711
  9. DIANEAL [Suspect]
     Active Substance: CALCIUM CHLORIDE\DEXTROSE\MAGNESIUM CHLORIDE\SODIUM CHLORIDE\SODIUM LACTATE
     Indication: Peritoneal dialysis
     Dosage: 5 L, QD
     Route: 033
     Dates: start: 20170330, end: 20170712
  10. ADALAT CC [Suspect]
     Active Substance: NIFEDIPINE
     Indication: Product used for unknown indication
     Dosage: 60 MG, PRN
     Route: 048
     Dates: start: 20091027
  11. VENOFER [Concomitant]
     Active Substance: IRON SUCROSE
     Indication: Product used for unknown indication
     Dosage: 100 MG, QW
     Route: 042
     Dates: start: 20170324
  12. FUROSEMIDE [Suspect]
     Active Substance: FUROSEMIDE
     Indication: Product used for unknown indication
     Dosage: 80 MG, PRN
     Route: 048
     Dates: start: 20170403
  13. EXTRANEAL [Suspect]
     Active Substance: CALCIUM CHLORIDE\ICODEXTRIN\MAGNESIUM CHLORIDE\SODIUM CHLORIDE\SODIUM LACTATE
     Indication: Peritoneal dialysis
     Dosage: 2 L, QD
     Route: 033
     Dates: start: 20170330, end: 20170712
  14. LINAGLIPTIN [Suspect]
     Active Substance: LINAGLIPTIN
     Indication: Product used for unknown indication
     Dosage: 5 MG, QD
     Route: 048
     Dates: start: 20170403
  15. SODIUM BICARBONATE [Suspect]
     Active Substance: SODIUM BICARBONATE
     Indication: Product used for unknown indication
     Dosage: 1 G, QD
     Route: 048
     Dates: start: 20170403
  16. ICODEXTRIN [Suspect]
     Active Substance: ICODEXTRIN
     Indication: Peritoneal dialysis
     Dosage: UNK
     Route: 033
  17. DIANEAL [Suspect]
     Active Substance: CALCIUM CHLORIDE\DEXTROSE\MAGNESIUM CHLORIDE\SODIUM CHLORIDE\SODIUM LACTATE
     Indication: Peritoneal dialysis
     Dosage: 5 L, BID
     Route: 033
     Dates: start: 20170330, end: 20170712

REACTIONS (1)
  - Cerebrovascular accident [Fatal]

NARRATIVE: CASE EVENT DATE: 20170712
